FAERS Safety Report 12296466 (Version 1)
Quarter: 2016Q2

REPORT INFORMATION
  Report Type: Spontaneous
  Country: US (occurrence: US)
  Receive Date: 20160422
  Receipt Date: 20160422
  Transmission Date: 20160815
  Serious: No
  Sender: FDA-Public Use
  Company Number: US-009507513-1604USA007620

PATIENT
  Sex: Male

DRUGS (1)
  1. CUBICIN [Suspect]
     Active Substance: DAPTOMYCIN
     Indication: INFECTION
     Dosage: 500 MG, QD
     Route: 042
     Dates: start: 20150701, end: 20150726

REACTIONS (1)
  - Infection [Unknown]

NARRATIVE: CASE EVENT DATE: 2015
